FAERS Safety Report 4380858-5 (Version None)
Quarter: 2004Q2

REPORT INFORMATION
  Report Type: 
  Country: None (occurrence: None)
  Receive Date: 20040616
  Receipt Date: 20040531
  Transmission Date: 20050107
  Serious: Yes (Hospitalization)
  Sender: FDA-Public Use
  Company Number: DSA_24481_2004

PATIENT
  Age: 66 Year
  Sex: Male

DRUGS (1)
  1. ATIVAN [Suspect]
     Indication: SLEEP DISORDER
     Dosage: 7 MG Q DAY PO
     Route: 048
     Dates: start: 19970101, end: 20040315

REACTIONS (5)
  - ANXIETY [None]
  - CATATONIA [None]
  - DRUG WITHDRAWAL SYNDROME [None]
  - FEAR [None]
  - HALLUCINATION [None]
